FAERS Safety Report 13940932 (Version 1)
Quarter: 2017Q3

REPORT INFORMATION
  Report Type: Spontaneous
  Country: IT (occurrence: IT)
  Receive Date: 20170906
  Receipt Date: 20170906
  Transmission Date: 20171127
  Serious: Yes (Hospitalization)
  Sender: FDA-Public Use
  Company Number: IT-ELI_LILLY_AND_COMPANY-IT201709000126

PATIENT
  Age: 86 Year
  Sex: Male

DRUGS (6)
  1. NORVASC [Concomitant]
     Active Substance: AMLODIPINE BESYLATE
  2. FORSTEO 250UG/ML [Suspect]
     Active Substance: TERIPARATIDE
     Indication: PRODUCT USED FOR UNKNOWN INDICATION
     Dosage: UNK, UNKNOWN
     Route: 065
     Dates: start: 20170805, end: 20170823
  3. FORSTEO 250UG/ML [Suspect]
     Active Substance: TERIPARATIDE
     Dosage: UNK, UNKNOWN
     Route: 065
     Dates: start: 20170827
  4. LASIX [Concomitant]
     Active Substance: FUROSEMIDE
  5. CARDIOASPIRINA [Concomitant]
     Active Substance: ASPIRIN
  6. TORVAST [Concomitant]
     Active Substance: ATORVASTATIN

REACTIONS (1)
  - Cardiac failure [Unknown]
